FAERS Safety Report 9966182 (Version 2)
Quarter: 2014Q1

REPORT INFORMATION
  Report Type: Report from Study
  Country: US (occurrence: US)
  Receive Date: 20140305
  Receipt Date: 20140305
  Transmission Date: 20141002
  Serious: No
  Sender: FDA-Public Use
  Company Number: US-ABBVIE-13P-163-1101476-00

PATIENT
  Age: 51 Year
  Sex: Female

DRUGS (6)
  1. HUMIRA [Suspect]
     Indication: ANKYLOSING SPONDYLITIS
     Dosage: ON THURSDAYS
     Dates: start: 20130408
  2. LISINOPRIL HCTZ [Concomitant]
     Indication: HYPERTENSION
     Dosage: 20/12.5MG DAILY
     Route: 048
  3. RANITIDINE [Concomitant]
     Indication: DYSPEPSIA
     Dosage: AS NEEDED
     Route: 048
  4. ASPIRIN [Concomitant]
     Indication: PROPHYLAXIS
     Dosage: DAILY
     Route: 048
  5. VITAMIN D [Concomitant]
     Indication: PRODUCT USED FOR UNKNOWN INDICATION
     Route: 048
  6. IBUPROFEN [Concomitant]
     Indication: PAIN
     Dosage: EVERY 4-6 HOURS AS NEEDED

REACTIONS (2)
  - Paraesthesia [Recovered/Resolved]
  - Injection site pain [Recovered/Resolved]
